FAERS Safety Report 15277350 (Version 1)
Quarter: 2018Q3

REPORT INFORMATION
  Report Type: Spontaneous
  Country: ES (occurrence: ES)
  Receive Date: 20180814
  Receipt Date: 20180814
  Transmission Date: 20181010
  Serious: Yes (Other)
  Sender: FDA-Public Use
  Company Number: ES-PFIZER INC-2018322382

PATIENT
  Age: 89 Year
  Sex: Male

DRUGS (5)
  1. ENOXAPARIN SODIUM. [Concomitant]
     Active Substance: ENOXAPARIN SODIUM
     Dosage: 100 MG, 1X/DAY
     Route: 058
     Dates: start: 20180615, end: 20180622
  2. ATORVASTATIN CALCIUM. [Suspect]
     Active Substance: ATORVASTATIN CALCIUM
     Indication: HYPERCHOLESTEROLAEMIA
     Dosage: 40 MG, 1X/DAY
     Route: 048
     Dates: start: 20180615, end: 20180618
  3. CEFTRIAXON [Concomitant]
     Active Substance: CEFTRIAXONE
     Dosage: 2 G, 1X/DAY
     Route: 042
     Dates: start: 20180615, end: 20180620
  4. CODEINE PHOSPHATE W/HYOSCINE BUTYLBROMIDE/MET [Concomitant]
     Indication: ABDOMINAL PAIN
     Route: 042
     Dates: start: 20180615, end: 20180620
  5. METOCLOPRAMID /00041901/ [Concomitant]
     Active Substance: METOCLOPRAMIDE
     Dosage: 10 MG, 1X/DAY
     Route: 042
     Dates: start: 20180515, end: 20180620

REACTIONS (2)
  - Hypertransaminasaemia [Recovered/Resolved]
  - Hyperbilirubinaemia [Recovered/Resolved]

NARRATIVE: CASE EVENT DATE: 20180617
